FAERS Safety Report 7134170-1 (Version None)
Quarter: 2010Q4

REPORT INFORMATION
  Report Type: 
  Country: None (occurrence: None)
  Receive Date: 20101203
  Receipt Date: 20101124
  Transmission Date: 20110411
  Serious: Yes (Hospitalization, Other)
  Sender: FDA-Public Use
  Company Number: US-JNJFOC-20101005943

PATIENT
  Sex: Female
  Weight: 69.08 kg

DRUGS (2)
  1. ORTHO-NOVUM 1/50 21 [Suspect]
     Indication: CONTRACEPTION
     Route: 048
  2. CLARITIN [Concomitant]
     Indication: HYPERSENSITIVITY
     Route: 048

REACTIONS (4)
  - BREAST CANCER IN SITU [None]
  - COMPUTERISED TOMOGRAM ABNORMAL [None]
  - MAMMOGRAM ABNORMAL [None]
  - ULTRASOUND SCAN ABNORMAL [None]
